FAERS Safety Report 9785707 (Version 1)
Quarter: 2013Q4

REPORT INFORMATION
  Report Type: Spontaneous
  Country: ES (occurrence: None)
  Receive Date: 20131224
  Receipt Date: 20131224
  Transmission Date: 20140711
  Serious: Yes (Hospitalization)
  Sender: FDA-Public Use
  Company Number: AUR-APL-2013-10638

PATIENT
  Age: 63 Year
  Sex: Male

DRUGS (1)
  1. METFORMIN (METFORMIN) [Suspect]
     Indication: TYPE 2 DIABETES MELLITUS
     Dosage: 2250 MG (850 MG, 3 IN 1 D)

REACTIONS (7)
  - Lactic acidosis [None]
  - Hyperkalaemia [None]
  - Respiratory depression [None]
  - Tachypnoea [None]
  - Psychomotor hyperactivity [None]
  - Haemodynamic instability [None]
  - Renal impairment [None]
